FAERS Safety Report 6439168-4 (Version None)
Quarter: 2009Q4

REPORT INFORMATION
  Report Type: 
  Country: None (occurrence: None)
  Receive Date: 20091113
  Receipt Date: 20091110
  Transmission Date: 20100525
  Serious: Yes (Other)
  Sender: FDA-Public Use
  Company Number: US-BRISTOL-MYERS SQUIBB COMPANY-14852404

PATIENT
  Sex: Male

DRUGS (2)
  1. COUMADIN [Suspect]
  2. CLARITHROMYCIN [Interacting]
     Indication: SINUSITIS

REACTIONS (2)
  - DRUG INTERACTION [None]
  - RENAL FAILURE ACUTE [None]
